FAERS Safety Report 12490249 (Version 1)
Quarter: 2016Q2

REPORT INFORMATION
  Report Type: Spontaneous
  Country: CA (occurrence: CA)
  Receive Date: 20160622
  Receipt Date: 20160622
  Transmission Date: 20160815
  Serious: Yes (Hospitalization, Other)
  Sender: FDA-Public Use
  Company Number: CA-HQ SPECIALTY-CA-2016INT000400

PATIENT
  Age: 59 Year
  Sex: Female

DRUGS (6)
  1. XELJANZ [Suspect]
     Active Substance: TOFACITINIB CITRATE
     Dosage: 5 MG, 2 IN 1 D
     Route: 048
     Dates: start: 20160506
  2. PREDNISONE. [Suspect]
     Active Substance: PREDNISONE
     Indication: RHEUMATOID ARTHRITIS
     Dosage: UNK
  3. XELJANZ [Suspect]
     Active Substance: TOFACITINIB CITRATE
     Dosage: 5 MG, 2 IN 1 D
     Route: 048
     Dates: start: 20150929, end: 20160504
  4. METHOTREXATE SODIUM. [Suspect]
     Active Substance: METHOTREXATE SODIUM
     Indication: RHEUMATOID ARTHRITIS
     Dosage: UNK
     Route: 065
     Dates: start: 2005
  5. XELJANZ [Suspect]
     Active Substance: TOFACITINIB CITRATE
     Indication: RHEUMATOID ARTHRITIS
     Dosage: 5 MG, 2 IN 1 D
     Route: 048
     Dates: start: 20150509, end: 20150826
  6. FENTANYL. [Suspect]
     Active Substance: FENTANYL
     Indication: PRODUCT USED FOR UNKNOWN INDICATION
     Dosage: UNK

REACTIONS (11)
  - Pharyngeal oedema [Unknown]
  - Oropharyngeal pain [Unknown]
  - Nephrolithiasis [Recovered/Resolved]
  - Cystitis [Unknown]
  - Musculoskeletal pain [Unknown]
  - Device related infection [Unknown]
  - Dyspnoea [Unknown]
  - Enlarged uvula [Unknown]
  - Syncope [Unknown]
  - Oxygen saturation decreased [Unknown]
  - Anxiety [Unknown]

NARRATIVE: CASE EVENT DATE: 201508
